FAERS Safety Report 7530329-X (Version None)
Quarter: 2011Q2

REPORT INFORMATION
  Report Type: 
  Country: None (occurrence: None)
  Receive Date: 20110607
  Receipt Date: 20110521
  Transmission Date: 20111010
  Serious: No
  Sender: FDA-Public Use
  Company Number: US-B.I. PHARMACEUTICALS,INC./RIDGEFIELD-2011-BP-01119BP

PATIENT
  Age: 74 Year
  Sex: Female

DRUGS (9)
  1. GARLIC [Concomitant]
     Indication: PROPHYLAXIS
  2. TENORMIN [Concomitant]
     Indication: HYPERTENSION
     Dosage: 25 MG
     Route: 048
     Dates: start: 19980101
  3. PREMERE OCULAR NUTRITION [Concomitant]
     Indication: MACULAR DEGENERATION
  4. HYDROCHLOROTHIAZIDE [Concomitant]
     Indication: HYPERTENSION
  5. FISH OIL [Concomitant]
     Indication: PROPHYLAXIS
  6. PRADAXA [Suspect]
     Indication: ATRIAL FIBRILLATION
     Dosage: 300 MG
     Route: 048
     Dates: start: 20101201
  7. MULTI-VITAMIN [Concomitant]
     Indication: PROPHYLAXIS
  8. FLAX SEED [Concomitant]
     Indication: PROPHYLAXIS
  9. SYNTHROID [Concomitant]
     Indication: THYROID DISORDER
     Dosage: 25 MG
     Route: 048
     Dates: start: 20080101

REACTIONS (6)
  - DYSPEPSIA [None]
  - ASPARTATE AMINOTRANSFERASE INCREASED [None]
  - DIZZINESS [None]
  - FAECAL VOLUME INCREASED [None]
  - HEADACHE [None]
  - HAEMATURIA [None]
